FAERS Safety Report 9755491 (Version 1)
Quarter: 2013Q4

REPORT INFORMATION
  Report Type: Spontaneous
  Country: US (occurrence: US)
  Receive Date: 20131213
  Receipt Date: 20131213
  Transmission Date: 20140711
  Serious: No
  Sender: FDA-Public Use
  Company Number: US-GLAXOSMITHKLINE-A1019033A

PATIENT
  Age: 69 Year
  Sex: Female

DRUGS (2)
  1. NICODERM CQ 21MG [Suspect]
     Indication: EX-TOBACCO USER
     Route: 062
  2. LOZENGE [Suspect]
     Indication: EX-TOBACCO USER
     Route: 048

REACTIONS (3)
  - Alopecia [Not Recovered/Not Resolved]
  - Oral discomfort [Recovered/Resolved]
  - Feeling abnormal [Recovered/Resolved]
